FAERS Safety Report 6795905-0 (Version None)
Quarter: 2010Q2

REPORT INFORMATION
  Report Type: 
  Country: None (occurrence: None)
  Receive Date: 20100625
  Receipt Date: 20100618
  Transmission Date: 20101027
  Serious: Yes (Other)
  Sender: FDA-Public Use
  Company Number: A0866991A

PATIENT
  Age: 35 Year
  Sex: Male

DRUGS (1)
  1. CEFUROXIME [Suspect]
     Indication: PNEUMONIA
     Dosage: 500MG TWICE PER DAY
     Route: 048
     Dates: start: 20091201, end: 20091201

REACTIONS (1)
  - HAEMATOCHEZIA [None]
